FAERS Safety Report 6592335-1 (Version None)
Quarter: 2010Q1

REPORT INFORMATION
  Report Type: 
  Country: None (occurrence: None)
  Receive Date: 20100221
  Receipt Date: 20100112
  Transmission Date: 20100710
  Serious: Yes (Other)
  Sender: FDA-Public Use
  Company Number: US-ALLERGAN-0913581US

PATIENT
  Age: 70 Year
  Sex: Male
  Weight: 75.737 kg

DRUGS (3)
  1. BOTOX [Suspect]
     Indication: MUSCLE SPASTICITY
     Dosage: 700 UNITS, SINGLE
     Route: 030
     Dates: start: 20090806, end: 20090806
  2. BOTOX [Suspect]
     Indication: MUSCLE RIGIDITY
  3. COUMADIN [Concomitant]

REACTIONS (2)
  - APHONIA [None]
  - DYSPHAGIA [None]
